FAERS Safety Report 12966898 (Version 1)
Quarter: 2016Q4

REPORT INFORMATION
  Report Type: Report from Study
  Country: US (occurrence: US)
  Receive Date: 20161123
  Receipt Date: 20161123
  Transmission Date: 20170207
  Serious: Yes (Life-Threatening)
  Sender: FDA-Public Use
  Company Number: US-ROCHE-1853689

PATIENT
  Age: 66 Year
  Sex: Female
  Weight: 113.5 kg

DRUGS (14)
  1. SYNTHROID [Concomitant]
     Active Substance: LEVOTHYROXINE SODIUM
     Indication: HYPOTHYROIDISM
     Dosage: TAKING FOR A LONG TIME;ONGOING:YES
     Route: 048
  2. LORTAB [Concomitant]
     Active Substance: ACETAMINOPHEN\HYDROCODONE BITARTRATE
     Indication: PAIN
     Dosage: 7.5/325MG,AS NEEDED,TAKING FOR A LONG TIME;ONGOING
     Route: 048
  3. NEURONTIN [Concomitant]
     Active Substance: GABAPENTIN
     Indication: IDIOPATHIC PULMONARY FIBROSIS
  4. LEXAPRO [Concomitant]
     Active Substance: ESCITALOPRAM OXALATE
     Indication: DEPRESSION
     Route: 048
  5. OXYGEN. [Concomitant]
     Active Substance: OXYGEN
     Dosage: ONGOING:YES
     Route: 055
  6. LORTAB [Concomitant]
     Active Substance: ACETAMINOPHEN\HYDROCODONE BITARTRATE
     Indication: COUGH
  7. ESBRIET [Suspect]
     Active Substance: PIRFENIDONE
     Indication: IDIOPATHIC PULMONARY FIBROSIS
     Dosage: UNKNOWN IF TABLET OR CAPSULE, UNKNOWN FREQUENCY ;ONGOING: NO?2 CAPSULES TID
     Route: 048
     Dates: start: 20161024, end: 20161107
  8. PANTOPRAZOLE SODIUM. [Concomitant]
     Active Substance: PANTOPRAZOLE SODIUM
     Indication: GASTROOESOPHAGEAL REFLUX DISEASE
     Dosage: TAKING FOR A LONG TIME;ONGOING:YES
     Route: 048
  9. ESTRACE [Concomitant]
     Active Substance: ESTRADIOL
     Route: 048
  10. MAXZIDE [Concomitant]
     Active Substance: HYDROCHLOROTHIAZIDE\TRIAMTERENE
     Indication: OEDEMA
     Dosage: 37.5/25MG, TAKING FOR A LONG TIME;ONGOING:YES
     Route: 048
  11. NEURONTIN [Concomitant]
     Active Substance: GABAPENTIN
     Indication: COUGH
     Dosage: TAKING FOR A LONG TIME;ONGOING:YES
     Route: 048
  12. VALIUM [Concomitant]
     Active Substance: DIAZEPAM
     Dosage: TAKING FOR A LONG TIME,1-2 A DAY AS NEEDED;ONGOING
     Route: 048
  13. ALLEGRA [Concomitant]
     Active Substance: FEXOFENADINE HYDROCHLORIDE
     Dosage: TAKING FOR A LONG TIME,1-2 A DAY AS NEEDED;ONGOING
     Route: 048
  14. TAGAMET [Concomitant]
     Active Substance: CIMETIDINE
     Dosage: TAKING FOR A LONG TIME,1-2 A DAY AS NEEDED;ONGOING
     Route: 048

REACTIONS (28)
  - Insomnia [Recovered/Resolved]
  - Nausea [Recovered/Resolved]
  - Peripheral swelling [Unknown]
  - Arthralgia [Recovered/Resolved]
  - Gastric disorder [Recovering/Resolving]
  - Headache [Recovered/Resolved]
  - Nightmare [Recovered/Resolved]
  - Dizziness [Recovered/Resolved]
  - Gastrooesophageal reflux disease [Recovered/Resolved]
  - Formication [Unknown]
  - Burning sensation [Recovered/Resolved]
  - Hot flush [Recovered/Resolved]
  - Irritable bowel syndrome [Not Recovered/Not Resolved]
  - Gastric disorder [Recovered/Resolved]
  - Crying [Recovered/Resolved]
  - Eye swelling [Recovered/Resolved]
  - Oedema [Recovering/Resolving]
  - Sinus disorder [Unknown]
  - Vision blurred [Recovered/Resolved]
  - Memory impairment [Unknown]
  - Dry skin [Recovered/Resolved]
  - Pruritus [Recovered/Resolved]
  - Depression [Recovered/Resolved]
  - Scratch [Unknown]
  - Haemorrhage [Unknown]
  - Ill-defined disorder [Unknown]
  - Diarrhoea [Recovered/Resolved]
  - Fatigue [Recovered/Resolved]

NARRATIVE: CASE EVENT DATE: 20161025
